FAERS Safety Report 8197362-9 (Version None)
Quarter: 2012Q1

REPORT INFORMATION
  Report Type: 
  Country: None (occurrence: None)
  Receive Date: 20120309
  Receipt Date: 20120302
  Transmission Date: 20120608
  Serious: Yes (Hospitalization)
  Sender: FDA-Public Use
  Company Number: US-JNJFOC-20120302862

PATIENT
  Age: 5 Decade
  Sex: Male

DRUGS (2)
  1. HALDOL [Suspect]
     Indication: SCHIZOPHRENIA
     Route: 030
  2. HALDOL [Suspect]
     Route: 030

REACTIONS (2)
  - WEIGHT INCREASED [None]
  - PSYCHOTIC DISORDER [None]
